FAERS Safety Report 8032117-7 (Version None)
Quarter: 2012Q1

REPORT INFORMATION
  Report Type: 
  Country: None (occurrence: None)
  Receive Date: 20120109
  Receipt Date: 20120105
  Transmission Date: 20120608
  Serious: Yes (Life-Threatening)
  Sender: FDA-Public Use
  Company Number: FR-ASTRAZENECA-2012SE01052

PATIENT
  Age: 59 Year
  Sex: Female

DRUGS (2)
  1. CELOCURINE [Suspect]
     Indication: INDUCTION OF ANAESTHESIA
     Route: 042
     Dates: start: 20110919, end: 20110919
  2. DIPRIVAN [Suspect]
     Indication: INDUCTION OF ANAESTHESIA
     Route: 042
     Dates: start: 20110919, end: 20110919

REACTIONS (3)
  - RASH [None]
  - BRONCHOSPASM [None]
  - ANAPHYLACTIC SHOCK [None]
